FAERS Safety Report 4498416-0 (Version None)
Quarter: 2004Q4

REPORT INFORMATION
  Report Type: 
  Country: None (occurrence: None)
  Receive Date: 20041105
  Receipt Date: 20041026
  Transmission Date: 20050328
  Serious: Yes (Life-Threatening, Hospitalization)
  Sender: FDA-Public Use
  Company Number: 2004AP04831

PATIENT
  Age: 42 Year
  Sex: Female
  Weight: 75 kg

DRUGS (10)
  1. IRESSA [Suspect]
     Indication: OVARIAN CANCER
     Dosage: 250 MG DAILY, PO
     Route: 048
     Dates: start: 20040709, end: 20040902
  2. ELOXATIN [Suspect]
     Indication: OVARIAN CANCER
     Dosage: 50 MG/M2 Q3WK, IV
     Route: 042
     Dates: start: 20040709
  3. ELOXATIN [Suspect]
     Indication: OVARIAN CANCER
     Dosage: 50 MG/M2 Q3WK IV
     Route: 042
  4. ELOXATIN [Suspect]
     Indication: OVARIAN CANCER
     Dosage: 30 MG/M2 Q3WK, IV
     Route: 042
     Dates: start: 20040902
  5. NAVELBINE [Suspect]
     Indication: OVARIAN CANCER
     Dosage: 25 MG/M2 Q3WK , IV
     Route: 042
     Dates: start: 20040709
  6. NAVELBINE [Suspect]
     Indication: OVARIAN CANCER
     Dosage: 25 MG/M2 Q3WK IV
     Route: 042
  7. NAVELBINE [Suspect]
     Indication: OVARIAN CANCER
     Dosage: 15 MG/M2 Q3WK IV
     Route: 042
     Dates: start: 20040902
  8. FRAXIPARINE [Concomitant]
  9. OMEPRAZOLE [Concomitant]
  10. GRANOCYTE ^AMRAD^ [Concomitant]

REACTIONS (3)
  - FEBRILE NEUTROPENIA [None]
  - MALIGNANT NEOPLASM PROGRESSION [None]
  - OVARIAN CANCER [None]
